FAERS Safety Report 21255389 (Version 2)
Quarter: 2022Q3

REPORT INFORMATION
  Report Type: Spontaneous
  Country: US (occurrence: US)
  Receive Date: 20220825
  Receipt Date: 20220919
  Transmission Date: 20221026
  Serious: Yes (Other)
  Sender: FDA-Public Use
  Company Number: US-TEVA-2022-US-2066498

PATIENT
  Age: 76 Year
  Sex: Female

DRUGS (17)
  1. DORZOLAMIDE [Suspect]
     Active Substance: DORZOLAMIDE
     Indication: Open angle glaucoma
     Route: 047
  2. DORZOLAMIDE [Suspect]
     Active Substance: DORZOLAMIDE
     Indication: Uveitic glaucoma
  3. NETARSUDIL [Suspect]
     Active Substance: NETARSUDIL
     Indication: Open angle glaucoma
     Route: 047
  4. NETARSUDIL [Suspect]
     Active Substance: NETARSUDIL
     Indication: Uveitic glaucoma
  5. AMLODIPINE [Concomitant]
     Active Substance: AMLODIPINE BESYLATE
     Indication: Hypertension
     Route: 065
  6. COLESTIPOL [Concomitant]
     Active Substance: COLESTIPOL
     Indication: Hypercholesterolaemia
     Route: 065
  7. PREDNISOLONE ACETATE [Concomitant]
     Active Substance: PREDNISOLONE ACETATE
     Indication: Open angle glaucoma
     Route: 047
  8. PREDNISOLONE ACETATE [Concomitant]
     Active Substance: PREDNISOLONE ACETATE
     Indication: Uveitic glaucoma
  9. BRIMONIDINE [Concomitant]
     Active Substance: BRIMONIDINE TARTRATE
     Indication: Open angle glaucoma
     Dosage: THREE TIMES A DAY
     Route: 047
  10. BRIMONIDINE [Concomitant]
     Active Substance: BRIMONIDINE TARTRATE
     Indication: Uveitic glaucoma
  11. TIMOLOL [Concomitant]
     Active Substance: TIMOLOL
     Indication: Open angle glaucoma
     Route: 047
  12. TIMOLOL [Concomitant]
     Active Substance: TIMOLOL
     Indication: Uveitic glaucoma
  13. SODIUM CHLORIDE [Concomitant]
     Active Substance: SODIUM CHLORIDE
     Indication: Eye disorder
     Route: 047
  14. SODIUM CHLORIDE [Concomitant]
     Active Substance: SODIUM CHLORIDE
     Dosage: AT BEDTIME
     Route: 047
  15. ACETAZOLAMIDE [Concomitant]
     Active Substance: ACETAZOLAMIDE
     Indication: Eye disorder
     Route: 047
  16. LATANOPROST [Concomitant]
     Active Substance: LATANOPROST
     Indication: Open angle glaucoma
     Dosage: AT BEDTIME
     Route: 047
  17. LATANOPROST [Concomitant]
     Active Substance: LATANOPROST
     Indication: Uveitic glaucoma

REACTIONS (3)
  - Retinal pigment epitheliopathy [Recovered/Resolved]
  - Transplant dysfunction [Unknown]
  - Corneal disorder [Unknown]
